FAERS Safety Report 10476950 (Version 1)
Quarter: 2014Q3

REPORT INFORMATION
  Report Type: Spontaneous
  Country: US (occurrence: US)
  Receive Date: 20140926
  Receipt Date: 20140926
  Transmission Date: 20150326
  Serious: No
  Sender: FDA-Public Use
  Company Number: US-ASTRAZENECA-2014SE69870

PATIENT
  Sex: Male

DRUGS (5)
  1. METOPROLOL [Suspect]
     Active Substance: METOPROLOL
     Route: 048
  2. ASPIRIN. [Concomitant]
     Active Substance: ASPIRIN
     Dosage: UNKNOWN UNK
     Route: 048
  3. PRAVASTATIN [Concomitant]
     Active Substance: PRAVASTATIN\PRAVASTATIN SODIUM
  4. LEVOLO [Concomitant]
     Dosage: UNKNOWN UNK
     Route: 048
  5. CRESTOR [Suspect]
     Active Substance: ROSUVASTATIN CALCIUM
     Dosage: UNKNOWN UNK
     Route: 048

REACTIONS (1)
  - Drug intolerance [Unknown]
